FAERS Safety Report 7268581-0 (Version None)
Quarter: 2011Q1

REPORT INFORMATION
  Report Type: 
  Country: None (occurrence: None)
  Receive Date: 20110121
  Receipt Date: 20110110
  Transmission Date: 20110831
  Serious: Yes (Hospitalization, Disabling, Other)
  Sender: FDA-Public Use
  Company Number: 1000016637

PATIENT
  Age: 84 Year
  Sex: Female
  Weight: 55 kg

DRUGS (5)
  1. BELOC ZOK MITE (METOPROLOL SUCCINATE) (TABLETS) [Suspect]
     Indication: HYPERTENSION
     Dosage: 95 MG (47.5 MG, 2 IN 1 D), ORAL, 190 MG (190 MG,1 IN 1 D)
     Route: 048
     Dates: start: 20000101, end: 20100901
  2. BELOC ZOK MITE (METOPROLOL SUCCINATE) (TABLETS) [Suspect]
     Indication: HYPERTENSION
     Dosage: 95 MG (47.5 MG, 2 IN 1 D), ORAL, 190 MG (190 MG,1 IN 1 D)
     Route: 048
     Dates: start: 20100904
  3. MOLSIDOMINE (MOLSIDOMINE)(TABLETS)(MOLSIDOMINE) [Concomitant]
  4. CITALOPRAM (CITALOPRAM HYDROBROMIDE) (TABLETS) [Suspect]
     Indication: DEPRESSION
     Dosage: 20 MG (20 MG, 1 IN 1 D), ORAL
     Route: 048
     Dates: start: 20100301, end: 20100816
  5. FALITHROM (PHENPROCOUMON) (TABLETS) [Suspect]
     Indication: ATRIAL FIBRILLATION
     Dosage: 2.78 MG (2.78 MG,L 1 IN 1 D), ORAL
     Route: 048
     Dates: start: 20100810, end: 20100817

REACTIONS (8)
  - HEPATITIS TOXIC [None]
  - HEPATIC CIRRHOSIS [None]
  - ATRIAL FIBRILLATION [None]
  - HELICOBACTER TEST POSITIVE [None]
  - ACUTE HEPATIC FAILURE [None]
  - DEHYDRATION [None]
  - REFLUX OESOPHAGITIS [None]
  - DIARRHOEA [None]
